FAERS Safety Report 18442436 (Version 1)
Quarter: 2020Q4

REPORT INFORMATION
  Report Type: Spontaneous
  Country: US (occurrence: US)
  Receive Date: 20201029
  Receipt Date: 20201029
  Transmission Date: 20210114
  Serious: No
  Sender: FDA-Public Use
  Company Number: US-ELI_LILLY_AND_COMPANY-US202010005267

PATIENT
  Sex: Female

DRUGS (1)
  1. EVISTA [Suspect]
     Active Substance: RALOXIFENE HYDROCHLORIDE
     Indication: OSTEOPENIA
     Dosage: UNK UNK, UNKNOWN
     Route: 065
     Dates: start: 20200612

REACTIONS (3)
  - Alopecia [Not Recovered/Not Resolved]
  - Depression [Unknown]
  - Weight increased [Unknown]
